FAERS Safety Report 5640685-5 (Version None)
Quarter: 2008Q1

REPORT INFORMATION
  Report Type: 
  Country: None (occurrence: None)
  Receive Date: 20080225
  Receipt Date: 20080208
  Transmission Date: 20080703
  Serious: Yes (Hospitalization)
  Sender: FDA-Public Use
  Company Number: 2008PL000015

PATIENT
  Age: 52 Year
  Sex: Female

DRUGS (9)
  1. AZATHIOPRINE [Suspect]
     Indication: PROTEINURIA
     Dosage: 125 MG; QD; PO
     Route: 048
  2. CYCLOSPORINE [Suspect]
     Indication: PROTEINURIA
  3. MYCOPHENOLATE MOFETIL [Suspect]
     Indication: PROTEINURIA
  4. PREDNISOLONE [Concomitant]
  5. LOSARTAN POTASSIUM [Concomitant]
  6. ASPIRIN [Concomitant]
  7. HYDROCHLOROTHIAZIDE [Concomitant]
  8. RAMIPRIL [Concomitant]
  9. SIMVASTATIN [Concomitant]

REACTIONS (6)
  - BLOOD CHOLESTEROL INCREASED [None]
  - BLOOD PRESSURE DIASTOLIC INCREASED [None]
  - HAEMATOCRIT DECREASED [None]
  - HAEMOGLOBIN DECREASED [None]
  - KAPOSI'S SARCOMA [None]
  - WHITE BLOOD CELL COUNT DECREASED [None]
